FAERS Safety Report 23642437 (Version 2)
Quarter: 2024Q1

REPORT INFORMATION
  Report Type: Spontaneous
  Country: IT (occurrence: IT)
  Receive Date: 20240318
  Receipt Date: 20240326
  Transmission Date: 20240410
  Serious: Yes (Other)
  Sender: FDA-Public Use
  Company Number: None

PATIENT

DRUGS (4)
  1. VOCABRIA [Suspect]
     Active Substance: CABOTEGRAVIR SODIUM
     Indication: HIV infection
     Dosage: 1 DF (1 VIAL CYCLIC ADMINISTRATION THIRD ADMINISTRATION)
     Route: 030
     Dates: start: 20230608, end: 20230608
  2. VOCABRIA [Suspect]
     Active Substance: CABOTEGRAVIR SODIUM
  3. VOCABRIA [Suspect]
     Active Substance: CABOTEGRAVIR SODIUM
  4. RILPIVIRINE [Suspect]
     Active Substance: RILPIVIRINE
     Indication: HIV infection
     Dosage: 1 DF (1 VIAL FOR CYCLICAL ADMINISTRATION THIRD ADMINISTRATION)
     Route: 030
     Dates: start: 20230608, end: 20230608

REACTIONS (2)
  - Hepatitis B [Recovered/Resolved]
  - Hepatitis viral [Recovered/Resolved]

NARRATIVE: CASE EVENT DATE: 20230620
